FAERS Safety Report 13654631 (Version 2)
Quarter: 2017Q2

REPORT INFORMATION
  Report Type: Report from Study
  Country: NO (occurrence: NO)
  Receive Date: 20170615
  Receipt Date: 20170621
  Transmission Date: 20170830
  Serious: Yes (Hospitalization)
  Sender: FDA-Public Use
  Company Number: NO-ROCHE-1630106

PATIENT
  Age: 34 Year
  Sex: Female
  Weight: 73.9 kg

DRUGS (28)
  1. OIL ENEMA [Concomitant]
     Indication: CONSTIPATION
     Route: 054
     Dates: start: 20160713
  2. PROGYNOVA [Concomitant]
     Active Substance: ESTRADIOL VALERATE
     Route: 048
  3. VOLTAREN [Concomitant]
     Active Substance: DICLOFENAC SODIUM
     Route: 048
  4. MIDAZOLAM [Concomitant]
     Active Substance: MIDAZOLAM HYDROCHLORIDE
     Indication: BACK PAIN
     Dosage: CONTINOUS 24 HOURS
     Route: 058
     Dates: start: 20160708, end: 20160712
  5. VALOID (NORWAY) [Concomitant]
     Indication: NAUSEA
     Route: 058
     Dates: start: 20160715
  6. PALLADON [Concomitant]
     Active Substance: HYDROMORPHONE
     Route: 048
     Dates: start: 20151221, end: 20160706
  7. PREDNISOLON [Concomitant]
     Active Substance: PREDNISOLONE
     Indication: ACUTE KIDNEY INJURY
     Route: 048
     Dates: start: 20160717
  8. SOLU-CORTEF [Concomitant]
     Active Substance: HYDROCORTISONE SODIUM SUCCINATE
     Indication: RASH
     Route: 042
     Dates: start: 20160714, end: 20160714
  9. TAZOCIN [Concomitant]
     Active Substance: PIPERACILLIN SODIUM\TAZOBACTAM SODIUM
     Indication: COLITIS
     Route: 042
     Dates: start: 20160712, end: 20160714
  10. PARACET (NORWAY) [Concomitant]
     Route: 048
  11. TAZOCIN [Concomitant]
     Active Substance: PIPERACILLIN SODIUM\TAZOBACTAM SODIUM
     Indication: COLITIS
     Route: 042
     Dates: start: 20160701, end: 20160704
  12. HALDOL [Concomitant]
     Active Substance: HALOPERIDOL
     Indication: NAUSEA
     Dosage: PUMP 24 HOURS
     Route: 058
     Dates: start: 20160715
  13. CEFOTAXIME [Concomitant]
     Active Substance: CEFOTAXIME SODIUM
     Indication: COLITIS
     Route: 042
     Dates: start: 20160714, end: 20160722
  14. KETALAR [Concomitant]
     Active Substance: KETAMINE HYDROCHLORIDE
     Indication: BACK PAIN
     Dosage: CONTINUOUS 24 HOURS
     Route: 058
     Dates: start: 20160708, end: 20160712
  15. FUROSEMID [Concomitant]
     Active Substance: FUROSEMIDE
     Indication: ACUTE KIDNEY INJURY
     Route: 042
     Dates: start: 20160717
  16. DEKSKLORFENIRAMIN [Concomitant]
     Indication: RASH
     Route: 042
     Dates: start: 20160714, end: 20160714
  17. ATEZOLIZUMAB [Suspect]
     Active Substance: ATEZOLIZUMAB
     Indication: NEOPLASM
     Dosage: DATE OF THE MOST RECENT DOSE OF ATEZOLIZUMAB PRIOR TO THE AE ONSET WAS 20AUG/2015 AT 13:55
     Route: 042
     Dates: start: 20150820
  18. PALLADON [Concomitant]
     Active Substance: HYDROMORPHONE
     Indication: ARTHRALGIA
     Route: 048
     Dates: end: 20151221
  19. VENLAFAXIN [Concomitant]
     Active Substance: VENLAFAXINE HYDROCHLORIDE
     Route: 048
  20. ZOPICLONE [Concomitant]
     Active Substance: ZOPICLONE
     Indication: INSOMNIA
     Route: 048
     Dates: start: 20160429, end: 20160714
  21. PARACETAMOL [Concomitant]
     Active Substance: ACETAMINOPHEN
     Indication: INFLUENZA LIKE ILLNESS
     Route: 048
     Dates: start: 20150914, end: 20150925
  22. AMOXICILLIN. [Concomitant]
     Active Substance: AMOXICILLIN
     Indication: COLITIS
     Route: 048
     Dates: start: 20160704, end: 20160711
  23. PALLADON [Concomitant]
     Active Substance: HYDROMORPHONE
     Dosage: CONTINOUS 24 HOURS
     Route: 048
     Dates: start: 20160706, end: 20160707
  24. FENTANYL. [Concomitant]
     Active Substance: FENTANYL
     Indication: BACK PAIN
     Route: 062
     Dates: start: 20160712
  25. ZYRTEC [Concomitant]
     Active Substance: CETIRIZINE HYDROCHLORIDE
     Route: 048
     Dates: start: 2000
  26. METRONIDAZOL [Concomitant]
     Active Substance: METRONIDAZOLE
     Indication: COLITIS
     Route: 048
     Dates: start: 20160704, end: 20160711
  27. ZOFRAN [Concomitant]
     Active Substance: ONDANSETRON HYDROCHLORIDE
     Indication: NAUSEA
     Dosage: PUMP 24 HOURS
     Route: 058
     Dates: start: 20160715
  28. APODORM [Concomitant]
     Active Substance: NITRAZEPAM
     Indication: INSOMNIA
     Route: 048
     Dates: start: 20160715

REACTIONS (1)
  - Pharyngitis [Recovered/Resolved]

NARRATIVE: CASE EVENT DATE: 20150831
